FAERS Safety Report 18559271 (Version 1)
Quarter: 2020Q4

REPORT INFORMATION
  Report Type: Spontaneous
  Country: CN (occurrence: CN)
  Receive Date: 20201130
  Receipt Date: 20201130
  Transmission Date: 20210114
  Serious: Yes (Hospitalization, Disabling)
  Sender: FDA-Public Use
  Company Number: CN-SA-2020SA342047

PATIENT

DRUGS (3)
  1. RIFAMPICIN [Suspect]
     Active Substance: RIFAMPIN
     Indication: ARTHRITIS INFECTIVE
     Dosage: 0.45 G, QD
     Route: 048
     Dates: start: 20201014, end: 20201018
  2. IMRECOXIB. [Suspect]
     Active Substance: IMRECOXIB
     Indication: ARTHRITIS INFECTIVE
     Dosage: 0.1 G, BID
     Route: 048
     Dates: start: 20201014, end: 20201018
  3. LEVOFLOXACIN. [Suspect]
     Active Substance: LEVOFLOXACIN
     Indication: ARTHRITIS INFECTIVE
     Dosage: 0.5 G, QD
     Route: 048
     Dates: start: 20201014, end: 20201018

REACTIONS (3)
  - Macule [Recovering/Resolving]
  - Pruritus [Recovering/Resolving]
  - Drug eruption [Recovering/Resolving]

NARRATIVE: CASE EVENT DATE: 20201017
